FAERS Safety Report 10047315 (Version 1)
Quarter: 2014Q1

REPORT INFORMATION
  Report Type: Spontaneous
  Country: US (occurrence: US)
  Receive Date: 20140331
  Receipt Date: 20140331
  Transmission Date: 20141002
  Serious: No
  Sender: FDA-Public Use
  Company Number: US-MYLANLABS-2014S1001000

PATIENT
  Age: 58 Year
  Sex: Female
  Weight: 103.87 kg

DRUGS (3)
  1. FENTANYL TRANSDERMAL SYSTEM [Suspect]
     Indication: PAIN
     Dosage: CHANGES Q72H
     Route: 062
     Dates: start: 2012
  2. NORCO [Concomitant]
  3. ATENOLOL [Concomitant]

REACTIONS (1)
  - Drug screen negative [Not Recovered/Not Resolved]
